FAERS Safety Report 6085555-6 (Version None)
Quarter: 2009Q1

REPORT INFORMATION
  Report Type: 
  Country: None (occurrence: None)
  Receive Date: 20090220
  Receipt Date: 20090209
  Transmission Date: 20090719
  Serious: Yes (Hospitalization)
  Sender: FDA-Public Use
  Company Number: CA-PFIZER INC-2008079456

PATIENT

DRUGS (8)
  1. SUNITINIB MALATE [Suspect]
     Indication: RENAL CELL CARCINOMA
     Dosage: ONCE DAILY
     Route: 048
     Dates: start: 20080519, end: 20080912
  2. SUNITINIB MALATE [Suspect]
     Route: 048
     Dates: start: 20081010
  3. SUNITINIB MALATE [Suspect]
     Dosage: 50 MG, 1X/DAY
     Route: 048
     Dates: start: 20080519, end: 20080912
  4. FRAGMIN [Suspect]
     Dosage: UNK
     Route: 058
  5. HEPARIN [Concomitant]
     Route: 058
     Dates: start: 20080911, end: 20080917
  6. PERCOCET [Concomitant]
     Route: 048
     Dates: start: 20080911, end: 20080917
  7. DOCUSATE SODIUM [Concomitant]
     Route: 048
     Dates: start: 20080911, end: 20080917
  8. SENOKOT [Concomitant]
     Route: 048
     Dates: start: 20080911, end: 20080917

REACTIONS (1)
  - HAEMATOMA [None]
